FAERS Safety Report 25342574 (Version 1)
Quarter: 2025Q2

REPORT INFORMATION
  Report Type: Spontaneous
  Country: US (occurrence: US)
  Receive Date: 20250521
  Receipt Date: 20250521
  Transmission Date: 20250716
  Serious: No
  Sender: CATALYST PHARMA
  Company Number: CATA2500685

PATIENT
  Age: 10 Year
  Sex: Male
  Weight: 40.816 kg

DRUGS (8)
  1. AGAMREE [Suspect]
     Active Substance: VAMOROLONE
     Indication: Duchenne muscular dystrophy
     Route: 048
     Dates: start: 20240717
  2. AGAMREE [Suspect]
     Active Substance: VAMOROLONE
     Dosage: 6 ML BY MOUTH DAILY
     Route: 048
     Dates: start: 20250222
  3. EQUAZEN Pro [Concomitant]
     Indication: Attention deficit hyperactivity disorder
     Dosage: 87/279/30 MG DAILY
     Route: 048
  4. PROBIOTIC CHILDREN^S ORAL PACKET [Concomitant]
     Indication: Gastrointestinal disorder
     Dosage: 1 PACKET DAILY
     Route: 048
  5. ZOLOFT [Concomitant]
     Active Substance: SERTRALINE HYDROCHLORIDE
     Indication: Affective disorder
     Dosage: 25 MILLIGRAM, QD
     Route: 048
  6. CALCIUM + MAGNESIUM + ZINK [Concomitant]
     Indication: Hypovitaminosis
     Dosage: 334-134-5MG TWICE DAILY
     Route: 048
  7. VITAMIN D3 [Concomitant]
     Active Substance: CHOLECALCIFEROL
     Indication: Hypovitaminosis
     Route: 048
  8. NYSTATIN [Concomitant]
     Active Substance: NYSTATIN
     Indication: Gastrointestinal candidiasis
     Route: 048

REACTIONS (2)
  - Sensitive skin [Unknown]
  - Skin discolouration [Not Recovered/Not Resolved]

NARRATIVE: CASE EVENT DATE: 20250301
